FAERS Safety Report 9544454 (Version 1)
Quarter: 2013Q3

REPORT INFORMATION
  Report Type: Spontaneous
  Country: US (occurrence: US)
  Receive Date: 20130923
  Receipt Date: 20130923
  Transmission Date: 20140515
  Serious: No
  Sender: FDA-Public Use
  Company Number: US-GLAXOSMITHKLINE-A0992327A

PATIENT
  Sex: Female

DRUGS (1)
  1. ABREVA [Suspect]
     Indication: CHAPPED LIPS

REACTIONS (5)
  - Chapped lips [Unknown]
  - Cheilitis [Unknown]
  - Condition aggravated [Unknown]
  - Drug administration error [Unknown]
  - Lip dry [Unknown]
